FAERS Safety Report 11677577 (Version 7)
Quarter: 2018Q2

REPORT INFORMATION
  Report Type: Report from Study
  Country: JP (occurrence: JP)
  Receive Date: 20151028
  Receipt Date: 20180627
  Transmission Date: 20180711
  Serious: Yes (Death, Life-Threatening, Hospitalization, Other)
  Sender: FDA-Public Use
  Company Number: JP-INCYTE CORPORATION-2015IN005515

PATIENT

DRUGS (8)
  1. JAKAVI [Suspect]
     Active Substance: RUXOLITINIB
     Dosage: 5 MG, BID
     Route: 048
     Dates: start: 20150508, end: 20150716
  2. JAKAVI [Suspect]
     Active Substance: RUXOLITINIB
     Dosage: 10 MG, BID
     Route: 048
     Dates: start: 20141009, end: 20141223
  3. JAKAVI [Suspect]
     Active Substance: RUXOLITINIB
     Dosage: 5 MG, QD
     Route: 048
     Dates: start: 20150416, end: 20150507
  4. JAKAVI [Suspect]
     Active Substance: RUXOLITINIB
     Dosage: 5 MG, BID
     Route: 048
     Dates: start: 20150224, end: 20150415
  5. JAKAVI [Suspect]
     Active Substance: RUXOLITINIB
     Indication: MYELOFIBROSIS
     Dosage: 5 MG, BID
     Route: 048
     Dates: start: 20140910, end: 20141008
  6. JAKAVI [Suspect]
     Active Substance: RUXOLITINIB
     Dosage: 5 MG, BID
     Route: 048
     Dates: start: 20141224, end: 20150128
  7. HYDROXYCARBAMIDE [Concomitant]
     Active Substance: HYDROXYUREA
     Indication: SPLENOMEGALY
     Dosage: UNK
     Route: 065
  8. VIDAZA [Suspect]
     Active Substance: AZACITIDINE
     Indication: ACUTE MYELOID LEUKAEMIA
     Dosage: 100 MG/BODY (BODY SURFACE AREA)
     Route: 042
     Dates: start: 20150320, end: 20150326

REACTIONS (24)
  - Blood alkaline phosphatase increased [Unknown]
  - Disorientation [Unknown]
  - Gamma-glutamyltransferase increased [Unknown]
  - Haematuria [Unknown]
  - Anal haemorrhage [Unknown]
  - Subarachnoid haemorrhage [Not Recovered/Not Resolved]
  - Pancytopenia [Not Recovered/Not Resolved]
  - Blood albumin decreased [Unknown]
  - Pneumonia [Fatal]
  - Anal ulcer [Not Recovered/Not Resolved]
  - Multiple organ dysfunction syndrome [Fatal]
  - Bone marrow failure [Not Recovered/Not Resolved]
  - Sepsis [Recovered/Resolved]
  - Pneumocystis jirovecii pneumonia [Recovering/Resolving]
  - Contusion [Unknown]
  - Dysarthria [Unknown]
  - White blood cell count decreased [Unknown]
  - Pyrexia [Unknown]
  - Platelet count decreased [Unknown]
  - Acute myeloid leukaemia [Not Recovered/Not Resolved]
  - General physical health deterioration [Fatal]
  - Subdural haematoma [Recovering/Resolving]
  - Fall [Unknown]
  - Neutrophil count decreased [Unknown]

NARRATIVE: CASE EVENT DATE: 20140926
